FAERS Safety Report 4712268-2 (Version None)
Quarter: 2005Q3

REPORT INFORMATION
  Report Type: 
  Country: None (occurrence: None)
  Receive Date: 20050712
  Receipt Date: 20050705
  Transmission Date: 20060218
  Serious: Yes (Other)
  Sender: FDA-Public Use
  Company Number: US-GLAXOSMITHKLINE-B0387160A

PATIENT
  Sex: Female

DRUGS (1)
  1. ZYBAN [Suspect]
     Indication: DRUG USE FOR UNKNOWN INDICATION
     Route: 048

REACTIONS (6)
  - CONDITION AGGRAVATED [None]
  - DEPRESSED MOOD [None]
  - DISABILITY [None]
  - HOSTILITY [None]
  - OVERDOSE [None]
  - SUICIDAL IDEATION [None]
